FAERS Safety Report 4708289-6 (Version None)
Quarter: 2005Q3

REPORT INFORMATION
  Report Type: 
  Country: None (occurrence: None)
  Receive Date: 20050707
  Receipt Date: 20050301
  Transmission Date: 20060218
  Serious: Yes (Hospitalization)
  Sender: FDA-Public Use
  Company Number: DE-MERCK-0503DEU00018

PATIENT
  Age: 71 Year
  Sex: Female
  Weight: 72 kg

DRUGS (7)
  1. VIOXX [Suspect]
     Indication: POLYARTHRITIS
     Route: 048
     Dates: start: 19980101, end: 20040901
  2. VIOXX [Suspect]
     Indication: SPINAL OSTEOARTHRITIS
     Route: 048
     Dates: start: 19980101, end: 20040901
  3. CANDESARTAN CILEXETIL AND HYDROCHLOROTHIAZIDE [Concomitant]
     Route: 048
     Dates: start: 20020101
  4. NEBIVOLOL HYDROCHLORIDE [Concomitant]
     Route: 065
     Dates: start: 20000101
  5. BECLOMETHASONE DIPROPIONATE [Concomitant]
     Route: 055
     Dates: start: 20000101
  6. SALMETEROL XINAFOATE [Concomitant]
     Route: 055
     Dates: start: 20000101
  7. LEVOTHYROXINE SODIUM [Concomitant]
     Route: 048
     Dates: start: 19960101

REACTIONS (7)
  - ATRIAL FIBRILLATION [None]
  - CAROTID ARTERY STENOSIS [None]
  - CEREBROVASCULAR ACCIDENT [None]
  - FLUSHING [None]
  - HYPERTENSIVE HEART DISEASE [None]
  - SINUS BRADYCARDIA [None]
  - SUPRAVENTRICULAR TACHYCARDIA [None]
